FAERS Safety Report 19885617 (Version 1)
Quarter: 2021Q3

REPORT INFORMATION
  Report Type: Spontaneous
  Country: CN (occurrence: CN)
  Receive Date: 20210927
  Receipt Date: 20210927
  Transmission Date: 20211014
  Serious: Yes (Hospitalization, Other)
  Sender: FDA-Public Use
  Company Number: CN-ASTRAZENECA-2021A739349

PATIENT
  Age: 63 Year
  Sex: Male
  Weight: 50 kg

DRUGS (7)
  1. INSULIN LISPRO [Suspect]
     Active Substance: INSULIN LISPRO
     Indication: HYPERGLYCAEMIA
     Dosage: 3.0U QD
     Route: 058
     Dates: start: 20210915, end: 20210915
  2. INSULIN LISPRO [Suspect]
     Active Substance: INSULIN LISPRO
     Indication: HYPERGLYCAEMIA
     Dosage: 3.0U QD
     Route: 058
     Dates: start: 20210915, end: 20210915
  3. INSULIN DETEMIR [Suspect]
     Active Substance: INSULIN DETEMIR
     Indication: HYPERGLYCAEMIA
     Dosage: 4.0U QD
     Route: 058
     Dates: start: 20210915, end: 20210915
  4. INSULIN LISPRO [Suspect]
     Active Substance: INSULIN LISPRO
     Indication: HYPERGLYCAEMIA
     Dosage: 2.0U QD
     Route: 058
     Dates: start: 20210915, end: 20210915
  5. GLIMEPIRIDE. [Concomitant]
     Active Substance: GLIMEPIRIDE
     Route: 048
  6. METFORMIN [Concomitant]
     Active Substance: METFORMIN HYDROCHLORIDE
     Indication: HYPOGLYCAEMIA
  7. SAXAGLIPTIN [Suspect]
     Active Substance: SAXAGLIPTIN
     Indication: HYPERGLYCAEMIA
     Route: 048
     Dates: start: 20210915, end: 20210915

REACTIONS (1)
  - Hypoglycaemic coma [Recovering/Resolving]

NARRATIVE: CASE EVENT DATE: 20210915
